FAERS Safety Report 21300603 (Version 4)
Quarter: 2024Q4

REPORT INFORMATION
  Report Type: Spontaneous
  Country: JP (occurrence: JP)
  Receive Date: 20220907
  Receipt Date: 20241101
  Transmission Date: 20250115
  Serious: Yes (Hospitalization, Other)
  Sender: TERSERA THERAPEUTICS
  Company Number: JP-ASTRAZENECA-220048889_010240_P_1

PATIENT

DRUGS (2)
  1. GOSERELIN [Suspect]
     Active Substance: GOSERELIN
     Indication: Prostate cancer
     Dosage: 10.8 MG ONCE A 12 WEEKS
     Route: 058
     Dates: start: 20210511, end: 20220819
  2. ZOLADEX [Suspect]
     Active Substance: GOSERELIN ACETATE
     Indication: Prostate cancer
     Dosage: UNK
     Route: 065

REACTIONS (6)
  - Venous injury [Recovered/Resolved]
  - Arterial haemorrhage [Recovered/Resolved]
  - Venous haemorrhage [Recovered/Resolved]
  - Abdominal wall haematoma [Unknown]
  - Arterial injury [Recovered/Resolved]
  - Injection site induration [Unknown]

NARRATIVE: CASE EVENT DATE: 20220819
